FAERS Safety Report 17326345 (Version 1)
Quarter: 2020Q1

REPORT INFORMATION
  Report Type: Report from Study
  Country: FR (occurrence: FR)
  Receive Date: 20200127
  Receipt Date: 20200127
  Transmission Date: 20200409
  Serious: Yes (Hospitalization)
  Sender: FDA-Public Use
  Company Number: FR-ROCHE-2525435

PATIENT
  Age: 49 Year
  Sex: Female

DRUGS (2)
  1. CISPLATINE [Suspect]
     Active Substance: CISPLATIN
     Indication: CERVIX CARCINOMA
     Dosage: FOR A CUMULATIVE DOSE OF 350 MG?LAST DOSE OF CISPLATIN ADMINISTERED PRIOR TO EVENT ONSET: 28/NOV/201
     Route: 042
     Dates: start: 20191031
  2. ATEZOLIZUMAB. [Suspect]
     Active Substance: ATEZOLIZUMAB
     Indication: CERVIX CARCINOMA
     Dosage: FOR A CUMULATIVE DOSE OF 4800 MG.?LAST DOSE OF ATEZOLIZUMAB ADMINISTERED PRIOR TO EVENT ONSET: 26/DE
     Route: 042
     Dates: start: 20191024

REACTIONS (1)
  - Salpingitis [Not Recovered/Not Resolved]

NARRATIVE: CASE EVENT DATE: 20200107
